FAERS Safety Report 7268286-6 (Version None)
Quarter: 2011Q1

REPORT INFORMATION
  Report Type: 
  Country: None (occurrence: None)
  Receive Date: 20110201
  Receipt Date: 20110125
  Transmission Date: 20110831
  Serious: No
  Sender: FDA-Public Use
  Company Number: US-PFIZER INC-2011018087

PATIENT
  Sex: Male

DRUGS (2)
  1. PHOSPHOLINE IODIDE [Suspect]
     Indication: GLAUCOMA
     Dosage: UNK
     Route: 047
     Dates: start: 20090101
  2. LUMIGAN [Concomitant]
     Dosage: UNK
     Route: 047

REACTIONS (1)
  - EYE IRRITATION [None]
